FAERS Safety Report 4611037-1 (Version None)
Quarter: 2005Q1

REPORT INFORMATION
  Report Type: 
  Country: None (occurrence: None)
  Receive Date: 20050317
  Receipt Date: 20040831
  Transmission Date: 20050727
  Serious: Yes (Other)
  Sender: FDA-Public Use
  Company Number: 200413253FR

PATIENT
  Age: 65 Year
  Sex: Female

DRUGS (4)
  1. RIFADIN [Suspect]
     Indication: PULMONARY TUBERCULOSIS
     Route: 048
  2. PYRAZINAMIDE [Suspect]
     Indication: PULMONARY TUBERCULOSIS
     Route: 048
  3. STREPTOMYCINE [Concomitant]
  4. MYAMBUTOL [Concomitant]
     Indication: TUBERCULOSIS
     Route: 048
     Dates: start: 19890601, end: 19890812

REACTIONS (6)
  - BALANCE DISORDER [None]
  - INTENTIONAL MISUSE [None]
  - OTOTOXICITY [None]
  - SENSORY DISTURBANCE [None]
  - TINNITUS [None]
  - VESTIBULAR DISORDER [None]
